FAERS Safety Report 8258513-0 (Version None)
Quarter: 2012Q2

REPORT INFORMATION
  Report Type: 
  Country: None (occurrence: None)
  Receive Date: 20120404
  Receipt Date: 20120328
  Transmission Date: 20120825
  Serious: Yes (Hospitalization, Other)
  Sender: FDA-Public Use
  Company Number: FR-PFIZER INC-A02200403687

PATIENT
  Age: 72 Year
  Sex: Female

DRUGS (5)
  1. EPIRUBICIN HYDROCHLORIDE [Suspect]
     Indication: BREAST CANCER
     Dosage: 117 MG
     Route: 042
     Dates: start: 20020101, end: 20041008
  2. CYCLOPHOSPHAMIDE [Suspect]
     Indication: BREAST CANCER
     Dosage: 588 MG
     Route: 042
     Dates: start: 20020101, end: 20041008
  3. FLUOROURACIL [Suspect]
     Indication: BREAST CANCER
     Dosage: 588 MG
     Route: 042
     Dates: start: 20020101, end: 20041008
  4. ZOFRAN [Suspect]
     Dosage: 2 MG/ML, 1 DF/DAY AS NEEDED
     Route: 042
  5. DEXAMETHASONE SODIUM PHOSPHATE [Suspect]
     Dosage: 20 MG, UNK
     Route: 042

REACTIONS (3)
  - ABDOMINAL PAIN [None]
  - COLITIS ISCHAEMIC [None]
  - RECTAL HAEMORRHAGE [None]
